FAERS Safety Report 6431259-7 (Version None)
Quarter: 2009Q4

REPORT INFORMATION
  Report Type: 
  Country: None (occurrence: None)
  Receive Date: 20091106
  Receipt Date: 20091027
  Transmission Date: 20100525
  Serious: Yes (Other)
  Sender: FDA-Public Use
  Company Number: US-PFIZER INC-2009289148

PATIENT
  Sex: Female
  Weight: 102.2 kg

DRUGS (10)
  1. CYCLOPHOSPHAMIDE [Suspect]
     Dosage: 1500 MG, UNK
     Route: 065
  2. DOXORUBICIN HCL [Suspect]
     Dosage: 100 MG, UNK
  3. VINCRISTINE SULFATE [Suspect]
     Dosage: 2 MG, UNK
  4. NEULASTA [Suspect]
     Indication: CHEMOTHERAPY
     Dosage: STOPPED
     Dates: start: 20090424
  5. RITUXIMAB [Suspect]
     Dosage: 750 MG, UNK
     Dates: start: 20090423
  6. IBUPROFEN [Concomitant]
     Dosage: 800 MG, 1 IN 8 HOURS
     Dates: start: 20090204
  7. CYCLOBENZAPRINE HYDROCHLORIDE [Concomitant]
     Dosage: 10 MG, 1 IN 4 HOURS
     Route: 065
     Dates: start: 20090204
  8. ALLOPURINOL [Concomitant]
     Dosage: 300 MG, 1 IN 1 DAYS
     Dates: start: 20090415
  9. OMEPRAZOLE [Concomitant]
     Dosage: 20 MG, 1 IN 1 DAY
     Dates: start: 20090415
  10. ACETAMINOPHEN [Concomitant]

REACTIONS (5)
  - BONE PAIN [None]
  - KERATITIS [None]
  - MALAISE [None]
  - NEUTROPENIA [None]
  - THERAPEUTIC RESPONSE DECREASED [None]
